FAERS Safety Report 7346338-X (Version None)
Quarter: 2011Q1

REPORT INFORMATION
  Report Type: 
  Country: None (occurrence: None)
  Receive Date: 20110311
  Receipt Date: 20110218
  Transmission Date: 20110831
  Serious: Yes (Other)
  Sender: FDA-Public Use
  Company Number: US-BAYER-201023267NA

PATIENT
  Sex: Female
  Weight: 77 kg

DRUGS (7)
  1. YAZ [Suspect]
     Indication: ORAL CONTRACEPTION
     Route: 048
  2. OCELLA [Suspect]
     Indication: PRODUCT USED FOR UNKNOWN INDICATION
     Route: 048
  3. ZEGERID [Concomitant]
     Dosage: UNK UNK, QD
     Route: 048
  4. FIBERCON [Concomitant]
     Dosage: UNK UNK, CONT
     Route: 048
  5. YASMIN [Suspect]
     Indication: ORAL CONTRACEPTION
     Route: 048
  6. ZELNORM [Concomitant]
     Dosage: 6 MG, BID
     Route: 048
  7. PAMINE [Concomitant]
     Dosage: 5 MG, BID
     Route: 048

REACTIONS (6)
  - ABDOMINAL PAIN UPPER [None]
  - CHOLECYSTITIS CHRONIC [None]
  - INJURY [None]
  - CHOLELITHIASIS [None]
  - METRORRHAGIA [None]
  - PAIN [None]
